FAERS Safety Report 18201370 (Version 2)
Quarter: 2020Q3

REPORT INFORMATION
  Report Type: Spontaneous
  Country: JP (occurrence: JP)
  Receive Date: 20200827
  Receipt Date: 20200831
  Transmission Date: 20201103
  Serious: Yes (Death, Other)
  Sender: FDA-Public Use
  Company Number: JP-ROCHE-2666212

PATIENT
  Sex: Male

DRUGS (8)
  1. VORICONAZOLE. [Concomitant]
     Active Substance: VORICONAZOLE
  2. PREVYMIS [Concomitant]
     Active Substance: LETERMOVIR
  3. DENOSINE (JAPAN) [Suspect]
     Active Substance: GANCICLOVIR
     Indication: PRODUCT USED FOR UNKNOWN INDICATION
     Route: 041
  4. ALBUMIN [Concomitant]
     Active Substance: ALBUMIN HUMAN
  5. VALIXA [Suspect]
     Active Substance: VALGANCICLOVIR
     Indication: TRANSPLANT
     Route: 048
  6. FLUCONAZOLE. [Concomitant]
     Active Substance: FLUCONAZOLE
     Route: 048
  7. PREDONINE [Concomitant]
     Active Substance: PREDNISOLONE
  8. PROGRAF [Concomitant]
     Active Substance: TACROLIMUS
     Route: 048

REACTIONS (3)
  - Death [Fatal]
  - Lymphocyte count decreased [Unknown]
  - Platelet count decreased [Unknown]
